FAERS Safety Report 9685866 (Version 2)
Quarter: 2013Q4

REPORT INFORMATION
  Report Type: Report from Study
  Country: US (occurrence: US)
  Receive Date: 20131113
  Receipt Date: 20131113
  Transmission Date: 20140711
  Serious: Yes (Other)
  Sender: FDA-Public Use
  Company Number: US-BAYER-2013-102005

PATIENT
  Age: 69 Year
  Sex: Male

DRUGS (4)
  1. NEXAVAR [Suspect]
     Indication: HEPATIC CANCER
     Dosage: UNK
     Route: 048
     Dates: start: 20130718
  2. NEXAVAR [Suspect]
     Indication: HEPATIC CANCER
     Dosage: UNK
     Route: 048
     Dates: start: 201307
  3. NEXAVAR [Suspect]
     Indication: HEPATIC CANCER
     Dosage: 200 MG, BID (LOWERED DOSE)
     Route: 048
     Dates: start: 201308
  4. NEXAVAR [Suspect]
     Indication: HEPATIC CANCER
     Dosage: 400 MG, BID
     Route: 048

REACTIONS (10)
  - Encephalopathy [None]
  - Gait disturbance [None]
  - Decreased appetite [None]
  - Asthenia [None]
  - Activities of daily living impaired [None]
  - Fatigue [None]
  - Pain of skin [None]
  - Musculoskeletal pain [None]
  - Malaise [None]
  - Confusional state [None]
